FAERS Safety Report 24577898 (Version 2)
Quarter: 2024Q4

REPORT INFORMATION
  Report Type: Spontaneous
  Country: RU (occurrence: RU)
  Receive Date: 20241104
  Receipt Date: 20241129
  Transmission Date: 20250115
  Serious: Yes (Death, Other)
  Sender: SEPTODONT
  Company Number: RU-SA-2020SA104473

PATIENT
  Age: 62 Year
  Sex: Female

DRUGS (3)
  1. ARTICAINE HYDROCHLORIDE\EPINEPHRINE HYDROCHLORIDE [Suspect]
     Active Substance: ARTICAINE HYDROCHLORIDE\EPINEPHRINE HYDROCHLORIDE
     Indication: Osteoarthritis
     Dosage: 1.0 ML PARA-ARTICULAR
     Route: 065
     Dates: start: 20191017, end: 20191017
  2. LIDOCAINE [Suspect]
     Active Substance: LIDOCAINE
     Indication: Osteoarthritis
     Dosage: DOSAGE: 1 /  ?1.0 UNK
     Route: 014
     Dates: start: 20191017, end: 20191017
  3. DIPROSPAN [Suspect]
     Active Substance: BETAMETHASONE DIPROPIONATE\BETAMETHASONE SODIUM PHOSPHATE
     Indication: Osteoarthritis
     Dosage: 1.0 ML
     Route: 014

REACTIONS (7)
  - Cardiac arrest [Fatal]
  - Loss of consciousness [Fatal]
  - Asthenia [Fatal]
  - Respiratory arrest [Fatal]
  - Pulse absent [Fatal]
  - Anisocoria [Not Recovered/Not Resolved]
  - Off label use [Unknown]

NARRATIVE: CASE EVENT DATE: 20191017
